FAERS Safety Report 21139231 (Version 1)
Quarter: 2022Q3

REPORT INFORMATION
  Report Type: Spontaneous
  Country: US (occurrence: US)
  Receive Date: 20220727
  Receipt Date: 20220727
  Transmission Date: 20221027
  Serious: No
  Sender: FDA-Public Use
  Company Number: US-PFIZER INC-202201000723

PATIENT
  Sex: Female

DRUGS (1)
  1. PRISTIQ EXTENDED-RELEASE [Suspect]
     Active Substance: DESVENLAFAXINE SUCCINATE
     Dosage: 25 MG

REACTIONS (6)
  - Intentional product misuse [Unknown]
  - Emotional distress [Unknown]
  - Pain [Unknown]
  - Crying [Unknown]
  - Drug intolerance [Unknown]
  - Emotional distress [Unknown]
